FAERS Safety Report 19962818 (Version 4)
Quarter: 2022Q1

REPORT INFORMATION
  Report Type: Report from Study
  Country: CA (occurrence: CA)
  Receive Date: 20211018
  Receipt Date: 20220124
  Transmission Date: 20220423
  Serious: Yes (Death, Life-Threatening, Hospitalization, Other)
  Sender: FDA-Public Use
  Company Number: CA-SA-SAC20210913000698

PATIENT
  Age: 59 Year
  Sex: Male
  Weight: 88 kg

DRUGS (14)
  1. ANTI-THYMOCYTE GLOBULIN (RABBIT) NOS [Suspect]
     Active Substance: LAPINE T-LYMPHOCYTE IMMUNE GLOBULIN
     Indication: Chronic graft versus host disease
     Dosage: 44 MG (FIRST DOSE)
     Dates: start: 20210822
  2. ANTI-THYMOCYTE GLOBULIN (RABBIT) NOS [Suspect]
     Active Substance: LAPINE T-LYMPHOCYTE IMMUNE GLOBULIN
     Dosage: 175 MG (SECOND DOSE)
     Dates: start: 20210823
  3. ANTI-THYMOCYTE GLOBULIN (RABBIT) NOS [Suspect]
     Active Substance: LAPINE T-LYMPHOCYTE IMMUNE GLOBULIN
     Dosage: 175 MG (THIRD DOSE)
     Dates: start: 20210825
  4. CYCLOPHOSPHAMIDE [Suspect]
     Active Substance: CYCLOPHOSPHAMIDE
     Indication: Prophylaxis against graft versus host disease
     Dosage: 3774 MG (FIRST DOSE)
     Dates: start: 20210827
  5. CYCLOPHOSPHAMIDE [Suspect]
     Active Substance: CYCLOPHOSPHAMIDE
     Dosage: 3774 MG (SECOND DOSE)
     Dates: start: 20210828
  6. QUETIAPINE [Concomitant]
     Active Substance: QUETIAPINE
     Indication: Delirium
     Dosage: 100 MG, QHS
     Route: 048
  7. QUETIAPINE [Concomitant]
     Active Substance: QUETIAPINE
     Dosage: 200 MG, QHS
     Route: 048
  8. NOSINAN [Concomitant]
     Indication: Delirium
     Dosage: UNK
     Dates: start: 20210918
  9. TACROLIMUS [Concomitant]
     Active Substance: TACROLIMUS
     Indication: Myelodysplastic syndrome
  10. TACROLIMUS [Concomitant]
     Active Substance: TACROLIMUS
     Indication: Bone marrow transplant
  11. ACYCLOVIR [Concomitant]
     Active Substance: ACYCLOVIR
     Indication: Myelodysplastic syndrome
  12. ACYCLOVIR [Concomitant]
     Active Substance: ACYCLOVIR
     Indication: Bone marrow transplant
  13. FLUCONAZOLE [Concomitant]
     Active Substance: FLUCONAZOLE
     Indication: Myelodysplastic syndrome
  14. FLUCONAZOLE [Concomitant]
     Active Substance: FLUCONAZOLE
     Indication: Bone marrow transplant

REACTIONS (2)
  - Acute respiratory distress syndrome [Fatal]
  - Hypoxia [Recovered/Resolved]

NARRATIVE: CASE EVENT DATE: 20210907
